FAERS Safety Report 4512987-7 (Version None)
Quarter: 2004Q4

REPORT INFORMATION
  Report Type: 
  Country: None (occurrence: None)
  Receive Date: 20041124
  Receipt Date: 20041109
  Transmission Date: 20050328
  Serious: Yes (Other)
  Sender: FDA-Public Use
  Company Number: 200409520

PATIENT
  Age: 96 Year
  Sex: Female

DRUGS (5)
  1. RESTASIS [Suspect]
     Indication: DRY EYE
     Dosage: 2 DROP BID EYE
  2. RESTASIS [Suspect]
     Indication: DRY EYE
     Dosage: 2 DROP BID EYE
     Dates: start: 20041020, end: 20041021
  3. TAMOXIFEN CITRATE [Concomitant]
  4. ASPIRIN [Concomitant]
  5. VITAMINS A-Z [Concomitant]

REACTIONS (1)
  - CORNEAL EROSION [None]
